FAERS Safety Report 12760589 (Version 1)
Quarter: 2016Q3

REPORT INFORMATION
  Report Type: Spontaneous
  Country: US (occurrence: US)
  Receive Date: 20160919
  Receipt Date: 20160919
  Transmission Date: 20161109
  Serious: No
  Sender: FDA-Public Use
  Company Number: US-ENDO PHARMACEUTICALS INC.-2016-001101

PATIENT
  Age: 76 Year
  Sex: Male

DRUGS (6)
  1. GABAPENTIN. [Suspect]
     Active Substance: GABAPENTIN
     Indication: DIABETIC NEUROPATHY
     Route: 065
     Dates: start: 201503, end: 201503
  2. AMITRIPTYLINE HCL 10MG [Suspect]
     Active Substance: AMITRIPTYLINE
     Indication: DIABETIC NEUROPATHY
     Route: 065
     Dates: start: 201304
  3. LYRICA [Suspect]
     Active Substance: PREGABALIN
     Indication: DIABETIC NEUROPATHY
     Route: 065
     Dates: start: 201510, end: 201510
  4. PRIMIDONE TABLETS 50MG [Suspect]
     Active Substance: PRIMIDONE
     Indication: DIABETIC NEUROPATHY
     Route: 065
     Dates: start: 201508, end: 201508
  5. MECLIZINE [Suspect]
     Active Substance: MECLIZINE HYDROCHLORIDE
     Indication: DIABETIC NEUROPATHY
     Route: 065
     Dates: start: 201506, end: 201506
  6. CILOSTAZOL. [Suspect]
     Active Substance: CILOSTAZOL
     Indication: DIABETIC NEUROPATHY
     Route: 065
     Dates: start: 201408, end: 201408

REACTIONS (7)
  - Sluggishness [Unknown]
  - Vision blurred [Unknown]
  - Malaise [Unknown]
  - Off label use [Recovered/Resolved]
  - Fluid retention [Unknown]
  - Dizziness [Unknown]
  - Drug ineffective for unapproved indication [Unknown]

NARRATIVE: CASE EVENT DATE: 201304
